FAERS Safety Report 19553212 (Version 3)
Quarter: 2022Q1

REPORT INFORMATION
  Report Type: Report from Study
  Country: US (occurrence: US)
  Receive Date: 20210715
  Receipt Date: 20220113
  Transmission Date: 20220424
  Serious: No
  Sender: FDA-Public Use
  Company Number: NVSC2021US158871

PATIENT
  Age: 49 Year
  Sex: Male

DRUGS (2)
  1. ENTRESTO [Suspect]
     Active Substance: SACUBITRIL\VALSARTAN
     Indication: Cardiac failure
     Dosage: 50 MG (24/26 MG), BID
     Route: 048
     Dates: start: 202105
  2. ENTRESTO [Suspect]
     Active Substance: SACUBITRIL\VALSARTAN
     Dosage: UNK (24/26 MG),  BID
     Route: 048
     Dates: start: 202105

REACTIONS (5)
  - Fatigue [Unknown]
  - Weight decreased [Unknown]
  - Nasal congestion [Unknown]
  - Anxiety [Unknown]
  - Cough [Unknown]

NARRATIVE: CASE EVENT DATE: 20220109
